FAERS Safety Report 6406560-3 (Version None)
Quarter: 2009Q4

REPORT INFORMATION
  Report Type: 
  Country: None (occurrence: None)
  Receive Date: 20091014
  Receipt Date: 20091001
  Transmission Date: 20100525
  Serious: Yes (Other)
  Sender: FDA-Public Use
  Company Number: 2009AP004010

PATIENT

DRUGS (2)
  1. DILT-CD [Suspect]
     Dosage: PO
     Route: 048
  2. DILTIAZEM HYDROCHLORIDE [Concomitant]

REACTIONS (2)
  - SICK SINUS SYNDROME [None]
  - THERAPEUTIC RESPONSE UNEXPECTED WITH DRUG SUBSTITUTION [None]
